FAERS Safety Report 14963422 (Version 1)
Quarter: 2018Q2

REPORT INFORMATION
  Report Type: Spontaneous
  Country: CA (occurrence: CA)
  Receive Date: 20180601
  Receipt Date: 20180601
  Transmission Date: 20180711
  Serious: Yes (Hospitalization, Other)
  Sender: FDA-Public Use
  Company Number: CA-CELLTRION INC.-2018CA018998

PATIENT

DRUGS (5)
  1. INFLECTRA [Suspect]
     Active Substance: INFLIXIMAB-DYYB
     Indication: ANKYLOSING SPONDYLITIS
     Dosage: 3 MG/KG, CYCLIC (EVERY 0,2,6 AND MAINTENANCE OF EVERY 8 WEEKS)
     Route: 042
     Dates: start: 20180328
  2. RABEPRAZOLE SODIUM. [Concomitant]
     Active Substance: RABEPRAZOLE SODIUM
     Dosage: UNK
  3. SIMVASTATIN. [Concomitant]
     Active Substance: SIMVASTATIN
     Dosage: UNK
  4. ALLOPURINOL. [Concomitant]
     Active Substance: ALLOPURINOL
     Dosage: UNK
  5. INFLECTRA [Suspect]
     Active Substance: INFLIXIMAB-DYYB
     Dosage: 3 MG/KG, CYCLIC (EVERY 0,2,6 AND MAINTENANCE OF EVERY 8 WEEKS)
     Route: 042
     Dates: start: 20180410

REACTIONS (4)
  - Oedema peripheral [Unknown]
  - Hernia [Unknown]
  - Pneumonia [Unknown]
  - Product use issue [Unknown]
